FAERS Safety Report 23657835 (Version 5)
Quarter: 2024Q3

REPORT INFORMATION
  Report Type: Spontaneous
  Country: US (occurrence: US)
  Receive Date: 20240321
  Receipt Date: 20240705
  Transmission Date: 20241016
  Serious: No
  Sender: EISAI
  Company Number: US-Eisai-EC-2024-159432

PATIENT
  Age: 72 Year
  Sex: Female

DRUGS (1)
  1. LEQEMBI [Suspect]
     Active Substance: LECANEMAB-IRMB
     Indication: Dementia Alzheimer^s type
     Dosage: DOSE UNKNOWN
     Route: 042
     Dates: start: 20240129

REACTIONS (5)
  - Dizziness [Unknown]
  - Visual impairment [Unknown]
  - Hallucination [Unknown]
  - Hypersomnia [Not Recovered/Not Resolved]
  - Memory impairment [Unknown]

NARRATIVE: CASE EVENT DATE: 20240101
